FAERS Safety Report 4284738-5 (Version None)
Quarter: 2004Q1

REPORT INFORMATION
  Report Type: 
  Country: None (occurrence: None)
  Receive Date: 20040202
  Receipt Date: 20040114
  Transmission Date: 20041129
  Serious: Yes (Hospitalization)
  Sender: FDA-Public Use
  Company Number: HQWYE994111AUG03

PATIENT
  Age: 82 Year
  Sex: Male

DRUGS (12)
  1. BISOPROLOL FUMARATE [Suspect]
     Dosage: 5 MG 1X PER 1 DAY
     Route: 048
     Dates: end: 20030629
  2. CORVASAL (MOLSIDOMINE) [Suspect]
     Dosage: 2 MG 1X PER 1 DAY
     Route: 048
     Dates: end: 20030715
  3. LASIX [Suspect]
     Dosage: 40 MG 1 X PER 1 DAY
     Route: 048
  4. MOTILIUM [Suspect]
     Route: 048
     Dates: start: 20030620, end: 20030629
  5. RAMIPRIL [Suspect]
     Dosage: 4 MG 1X PER 1 DAY
     Route: 048
     Dates: end: 20030627
  6. MEXITIL [Concomitant]
  7. SINTROM [Concomitant]
  8. CORDARONE [Concomitant]
  9. IMOVANE (ZOPICLONE) [Concomitant]
  10. NEO-MERCAZOLE TAB [Concomitant]
  11. PROSCAR [Concomitant]
  12. NATISPRAY (GLYCERYL TRINITRATE) [Concomitant]

REACTIONS (16)
  - BLOOD CALCIUM DECREASED [None]
  - CARDIAC MURMUR [None]
  - CONSTIPATION [None]
  - DIARRHOEA [None]
  - DYSSTASIA [None]
  - FALL [None]
  - GASTROINTESTINAL DISORDER [None]
  - HEAD INJURY [None]
  - HEART SOUNDS ABNORMAL [None]
  - HYPERKALAEMIA [None]
  - HYPOTENSION [None]
  - INFLAMMATION [None]
  - NAUSEA [None]
  - PULSE ABSENT [None]
  - RENAL FAILURE [None]
  - VERTIGO [None]
